FAERS Safety Report 20040423 (Version 1)
Quarter: 2021Q4

REPORT INFORMATION
  Report Type: Spontaneous
  Country: US (occurrence: None)
  Receive Date: 20211104
  Receipt Date: 20211104
  Transmission Date: 20220304
  Serious: No
  Sender: FDA-Public Use
  Company Number: None

PATIENT
  Age: 16 Year
  Sex: Male
  Weight: 56.7 kg

DRUGS (2)
  1. MINOCYCLINE [Suspect]
     Active Substance: MINOCYCLINE HYDROCHLORIDE
     Indication: Acne
     Dosage: FREQUENCY : AT BEDTIME;?
     Route: 048
     Dates: start: 20210822, end: 20210908
  2. ZYRTEC [Concomitant]
     Active Substance: CETIRIZINE HYDROCHLORIDE

REACTIONS (6)
  - Nasopharyngitis [None]
  - Lymphadenopathy [None]
  - Rash [None]
  - Chest pain [None]
  - Pyrexia [None]
  - Dizziness [None]

NARRATIVE: CASE EVENT DATE: 20210903
